FAERS Safety Report 11946114 (Version 2)
Quarter: 2016Q1

REPORT INFORMATION
  Report Type: Report from Study
  Country: US (occurrence: US)
  Receive Date: 20160125
  Receipt Date: 20160129
  Transmission Date: 20160526
  Serious: No
  Sender: FDA-Public Use
  Company Number: US-AMGEN-USASL2015135933

PATIENT
  Age: 65 Year
  Sex: Female

DRUGS (1)
  1. REPATHA [Suspect]
     Active Substance: EVOLOCUMAB
     Indication: PRODUCT USED FOR UNKNOWN INDICATION
     Dosage: 140 MG, Q2WK
     Route: 065
     Dates: start: 201510

REACTIONS (3)
  - Ear infection [Not Recovered/Not Resolved]
  - Rhinitis [Not Recovered/Not Resolved]
  - Localised infection [Not Recovered/Not Resolved]

NARRATIVE: CASE EVENT DATE: 2015
